FAERS Safety Report 20762369 (Version 1)
Quarter: 2022Q2

REPORT INFORMATION
  Report Type: Spontaneous
  Country: CN (occurrence: CN)
  Receive Date: 20220428
  Receipt Date: 20220428
  Transmission Date: 20220721
  Serious: Yes (Other)
  Sender: FDA-Public Use
  Company Number: CN-BoehringerIngelheim-2022-BI-167669

PATIENT
  Age: 72 Year
  Sex: Female
  Weight: 52.000 kg

DRUGS (4)
  1. OFEV [Suspect]
     Active Substance: NINTEDANIB
     Indication: Interstitial lung disease
     Route: 048
     Dates: start: 20210904, end: 20220421
  2. OFEV [Suspect]
     Active Substance: NINTEDANIB
     Route: 048
  3. CLOPIDOGREL BISULFATE [Suspect]
     Active Substance: CLOPIDOGREL BISULFATE
     Indication: Coagulopathy
     Route: 048
     Dates: start: 20210730, end: 20220425
  4. ASPIRIN [Suspect]
     Active Substance: ASPIRIN
     Indication: Coagulopathy
     Route: 048
     Dates: start: 20210730, end: 20220425

REACTIONS (1)
  - Petechiae [Unknown]

NARRATIVE: CASE EVENT DATE: 20220421
